FAERS Safety Report 15153387 (Version 1)
Quarter: 2018Q3

REPORT INFORMATION
  Report Type: Spontaneous
  Country: JP (occurrence: JP)
  Receive Date: 20180717
  Receipt Date: 20180717
  Transmission Date: 20181010
  Serious: Yes (Hospitalization, Other)
  Sender: FDA-Public Use
  Company Number: JP-BAYER-2018-131785

PATIENT
  Age: 75 Year
  Sex: Male

DRUGS (2)
  1. BAYASPIRIN 100 MG [Suspect]
     Active Substance: ASPIRIN
  2. CLOPIDOGREL [Suspect]
     Active Substance: CLOPIDOGREL BISULFATE

REACTIONS (5)
  - Melaena [Recovered/Resolved]
  - Anaemia [Unknown]
  - Small intestine ulcer [Recovered/Resolved with Sequelae]
  - Diarrhoea [Recovered/Resolved]
  - Dizziness [Unknown]
